FAERS Safety Report 9029115 (Version 4)
Quarter: 2013Q1

REPORT INFORMATION
  Report Type: Spontaneous
  Country: US (occurrence: US)
  Receive Date: 20130122
  Receipt Date: 20130307
  Transmission Date: 20140127
  Serious: Yes (Hospitalization, Other)
  Sender: FDA-Public Use
  Company Number: US-PFIZER INC-2013024493

PATIENT
  Age: 65 Year
  Sex: Female
  Weight: 56.69 kg

DRUGS (17)
  1. LYRICA [Suspect]
     Indication: NEUROPATHY PERIPHERAL
     Dosage: 50 MG, 2X/DAY
     Route: 048
  2. HYDROCODONE W/ACETAMINOPHEN [Concomitant]
     Indication: RESTLESS LEGS SYNDROME
     Dosage: 7.5/500 MG, 3X/DAY
  3. HYDROCODONE W/ACETAMINOPHEN [Concomitant]
     Dosage: 10/325 MG, 1X/DAY
  4. ZINC SUPPLEMENTS [Concomitant]
     Dosage: 50 MG, 1X/DAY
  5. SIMVASTATIN [Concomitant]
     Dosage: 20 MG, 1X/DAY
  6. HYDROXYZINE [Concomitant]
     Indication: ANXIETY
     Dosage: 50 MG, 3X/DAY
  7. FENOFIBRATE [Concomitant]
     Dosage: 134 MG, 1X/DAY
  8. LISINOPRIL [Concomitant]
     Indication: HYPERTENSION
     Dosage: 10 MG, UNK
  9. ESTRADIOL [Concomitant]
     Dosage: 0.05 MG, 1X/DAY
  10. EFFEXOR [Concomitant]
     Dosage: 75 MG, 2X/DAY
  11. LEVOTHYROXINE [Concomitant]
     Dosage: UNK, 1X/DAY
  12. PANTOPRAZOLE [Concomitant]
     Dosage: UNK, 2X/DAY
  13. CARISOPRODOL [Concomitant]
     Indication: NEURALGIA
     Dosage: 350 MG, UNK
  14. VITAMIN B COMPLEX SUPPLEMENT [Concomitant]
     Dosage: UNK
  15. VITAMIN C SUPLLEMENTS [Concomitant]
     Dosage: 500 MG, UNK
  16. CALCIUM WITH VITAMIN D [Concomitant]
     Dosage: UNK, 1X/DAY
  17. VITAMIN E SUPPLEMENT [Concomitant]
     Dosage: 400 IU, UNK

REACTIONS (5)
  - Musculoskeletal disorder [Unknown]
  - Road traffic accident [Unknown]
  - Nervous system disorder [Unknown]
  - Limb discomfort [Unknown]
  - Insomnia [Unknown]
